FAERS Safety Report 4530237-2 (Version None)
Quarter: 2004Q4

REPORT INFORMATION
  Report Type: 
  Country: None (occurrence: None)
  Receive Date: 20041215
  Receipt Date: 20041130
  Transmission Date: 20050328
  Serious: Yes (Hospitalization)
  Sender: FDA-Public Use
  Company Number: 8008229

PATIENT
  Age: 15 Year
  Sex: Male

DRUGS (2)
  1. KEPPRA [Suspect]
     Indication: EPILEPSY
     Dosage: 1000 MG 2/D PO
     Route: 048
  2. TRILEPTAL [Suspect]
     Indication: EPILEPSY
     Dosage: 1500 MG /D PO
     Route: 048

REACTIONS (12)
  - CHEST PAIN [None]
  - DYSURIA [None]
  - EPSTEIN-BARR VIRUS ANTIBODY [None]
  - FEELING HOT [None]
  - HEAD DISCOMFORT [None]
  - HYPERTHERMIA [None]
  - RASH MACULO-PAPULAR [None]
  - RUBELLA ANTIBODY POSITIVE [None]
  - THROMBOCYTOPENIA [None]
  - VARICELLA ZOSTER VIRUS SEROLOGY POSITIVE [None]
  - VERTIGO [None]
  - VIRAL RASH [None]
